FAERS Safety Report 9311900 (Version 2)
Quarter: 2013Q3

REPORT INFORMATION
  Report Type: Report from Study
  Country: AU (occurrence: AU)
  Receive Date: 20130528
  Receipt Date: 20130809
  Transmission Date: 20140515
  Serious: Yes (Other)
  Sender: FDA-Public Use
  Company Number: PHHY2013AU027475

PATIENT
  Age: 77 Year
  Sex: Female
  Weight: 78.6 kg

DRUGS (7)
  1. ACLASTA [Suspect]
     Dosage: 5 MG, UNK
     Route: 042
     Dates: start: 20090421
  2. ACLASTA [Suspect]
     Dosage: 5 MG, UNK
     Route: 042
     Dates: start: 20100314
  3. ACLASTA [Suspect]
     Dosage: 5 MG, UNK
     Route: 042
     Dates: start: 20110411
  4. ACLASTA [Suspect]
     Dosage: 5 MG, UNK
     Route: 042
     Dates: start: 20130316
  5. CARTIA [Concomitant]
     Dosage: 1 DF, QD
     Route: 048
  6. HYDRALAZINE [Concomitant]
     Dosage: 1 DF, BID
     Route: 048
  7. ISOPTIN [Concomitant]
     Dosage: 1 DF, QD
     Route: 048

REACTIONS (5)
  - Intervertebral disc disorder [Recovering/Resolving]
  - Blood pressure increased [Recovered/Resolved]
  - Heart rate increased [Recovering/Resolving]
  - Anxiety [Recovered/Resolved]
  - Body temperature increased [Recovered/Resolved]
